FAERS Safety Report 20012702 (Version 1)
Quarter: 2021Q4

REPORT INFORMATION
  Report Type: Spontaneous
  Country: US (occurrence: US)
  Receive Date: 20211029
  Receipt Date: 20211029
  Transmission Date: 20220303
  Serious: Yes (Hospitalization)
  Sender: FDA-Public Use
  Company Number: US-GW PHARMA-202110USGW05257

PATIENT

DRUGS (1)
  1. EPIDIOLEX [Suspect]
     Active Substance: CANNABIDIOL
     Indication: Product used for unknown indication
     Dosage: 6.31 MG/KG/DAY, 100 MILLIGRAM, BID
     Dates: start: 20200601

REACTIONS (1)
  - Nervous system disorder [Unknown]

NARRATIVE: CASE EVENT DATE: 20210101
